FAERS Safety Report 6525428-5 (Version None)
Quarter: 2009Q4

REPORT INFORMATION
  Report Type: 
  Country: None (occurrence: None)
  Receive Date: 20091214
  Receipt Date: 20090429
  Transmission Date: 20100525
  Serious: Yes (Other)
  Sender: FDA-Public Use
  Company Number: 630597

PATIENT
  Age: 64 Year
  Sex: Male

DRUGS (2)
  1. PEGASYS [Suspect]
     Indication: HEPATITIS C
     Dosage: 90 UG 1 PER 1 WEEK SUBCUTANEOUS
     Route: 058
     Dates: start: 20090425, end: 20090429
  2. RIBAVIRIN [Suspect]
     Indication: HEPATITIS C

REACTIONS (2)
  - INAPPROPRIATE SCHEDULE OF DRUG ADMINISTRATION [None]
  - THROMBOCYTOPENIA [None]
